FAERS Safety Report 20059104 (Version 1)
Quarter: 2021Q4

REPORT INFORMATION
  Report Type: Spontaneous
  Country: US (occurrence: None)
  Receive Date: 20211111
  Receipt Date: 20211111
  Transmission Date: 20220303
  Serious: Yes (Hospitalization)
  Sender: FDA-Public Use
  Company Number: US-ROCHE-2947075

PATIENT
  Age: 0 Day
  Sex: Male

DRUGS (1)
  1. OCREVUS [Suspect]
     Active Substance: OCRELIZUMAB
     Indication: Product used for unknown indication
     Dosage: NO
     Route: 064

REACTIONS (3)
  - Premature baby [Unknown]
  - Blood glucose decreased [Recovered/Resolved]
  - Foetal exposure during pregnancy [Unknown]

NARRATIVE: CASE EVENT DATE: 20211026
